FAERS Safety Report 10690487 (Version 1)
Quarter: 2015Q1

REPORT INFORMATION
  Report Type: Spontaneous
  Country: US (occurrence: None)
  Receive Date: 20150102
  Receipt Date: 20150102
  Transmission Date: 20150720
  Serious: Yes (Other)
  Sender: FDA-Public Use
  Company Number: None

PATIENT
  Age: 15 Year
  Sex: Male
  Weight: 68.95 kg

DRUGS (1)
  1. ROACCUTANE [Suspect]
     Active Substance: ISOTRETINOIN
     Indication: ACNE
     Dosage: 2 PILLS OF 20MG, 1 OF 10 MG?30MG AM, 20MG PM?TAKEN BY MOUTH
     Route: 048
     Dates: start: 20130205, end: 20131022

REACTIONS (1)
  - Androgenetic alopecia [None]
